FAERS Safety Report 8068040-1 (Version None)
Quarter: 2012Q1

REPORT INFORMATION
  Report Type: 
  Country: None (occurrence: None)
  Receive Date: 20120124
  Receipt Date: 20110926
  Transmission Date: 20120608
  Serious: No
  Sender: FDA-Public Use
  Company Number: US-AMGEN-USASP2011049707

PATIENT
  Sex: Female

DRUGS (4)
  1. HYDROCHLOROTHIAZIDE [Concomitant]
  2. PROLIA [Suspect]
     Indication: OSTEOPENIA
     Dosage: 60 MG, Q6MO
     Dates: start: 20110509
  3. PREMARIN [Concomitant]
  4. SYNTHROID [Concomitant]

REACTIONS (4)
  - MALAISE [None]
  - PAIN [None]
  - FATIGUE [None]
  - ANAEMIA [None]
